FAERS Safety Report 7501095-9 (Version None)
Quarter: 2011Q2

REPORT INFORMATION
  Report Type: 
  Country: None (occurrence: None)
  Receive Date: 20110524
  Receipt Date: 20110516
  Transmission Date: 20111010
  Serious: Yes (Congenital Anomaly, Other)
  Sender: FDA-Public Use
  Company Number: US-PFIZER INC-2011105671

PATIENT
  Sex: Female
  Weight: 2.72 kg

DRUGS (2)
  1. EFFEXOR [Suspect]
     Indication: MAJOR DEPRESSION
     Dosage: 75MG ONE TABLET IN MORNING AND TWO TABLETS IN EVENING
     Route: 064
  2. EFFEXOR XR [Suspect]
     Indication: DEPRESSION
     Dosage: 75MG ONE CAPSULE IN MORNING AND TWO CAPSULES IN EVENING
     Route: 064

REACTIONS (6)
  - TRICUSPID VALVE INCOMPETENCE [None]
  - VENTRICULAR SEPTAL DEFECT [None]
  - ATRIAL SEPTAL DEFECT [None]
  - LUNG HYPERINFLATION [None]
  - DRUG EXPOSURE DURING PREGNANCY [None]
  - CHEST X-RAY ABNORMAL [None]
